FAERS Safety Report 4514936-4 (Version None)
Quarter: 2004Q4

REPORT INFORMATION
  Report Type: 
  Country: None (occurrence: None)
  Receive Date: 20041129
  Receipt Date: 20041129
  Transmission Date: 20050328
  Serious: No
  Sender: FDA-Public Use
  Company Number: None

PATIENT
  Age: 38 Year
  Sex: Female
  Weight: 67.586 kg

DRUGS (2)
  1. PRAVACHOL [Suspect]
     Indication: BLOOD CHOLESTEROL INCREASED
     Dosage: ONE    ONCE DAILY    ORAL
     Route: 048
     Dates: start: 20040430, end: 20040810
  2. WELLBUTRIN [Concomitant]

REACTIONS (13)
  - ALOPECIA [None]
  - AMNESIA [None]
  - ANOREXIA [None]
  - CHEST PAIN [None]
  - CHILLS [None]
  - DIZZINESS [None]
  - GALLBLADDER DISORDER [None]
  - HEPATIC ENZYME INCREASED [None]
  - NAUSEA [None]
  - PERSONALITY CHANGE [None]
  - PYREXIA [None]
  - VISION BLURRED [None]
  - VOMITING [None]
